FAERS Safety Report 7995520-7 (Version None)
Quarter: 2011Q4

REPORT INFORMATION
  Report Type: 
  Country: None (occurrence: None)
  Receive Date: 20111220
  Receipt Date: 20111214
  Transmission Date: 20120403
  Serious: Yes (Other)
  Sender: FDA-Public Use
  Company Number: US-PFIZER INC-2011304565

PATIENT

DRUGS (1)
  1. TOVIAZ [Suspect]
     Dosage: UNK
     Dates: end: 20111201

REACTIONS (1)
  - VISION BLURRED [None]
